FAERS Safety Report 6215717-6 (Version None)
Quarter: 2009Q2

REPORT INFORMATION
  Report Type: 
  Country: None (occurrence: None)
  Receive Date: 20090603
  Receipt Date: 20090603
  Transmission Date: 20091009
  Serious: Yes (Hospitalization)
  Sender: FDA-Public Use
  Company Number: None

PATIENT
  Sex: Female
  Weight: 65.318 kg

DRUGS (2)
  1. DIGOXIN [Suspect]
     Indication: HEART RATE IRREGULAR
     Dosage: 0.25 MG ONCE A DAY P.O. END OF APRIL 2009
     Route: 048
     Dates: start: 20030517
  2. DIGOXIN [Suspect]
     Indication: HEART RATE IRREGULAR
     Dosage: 0.25 MG ONCE A DAY P.O. END OF APRIL 2009
     Route: 048
     Dates: start: 20090401

REACTIONS (4)
  - ANAEMIA [None]
  - HYPOTENSION [None]
  - RENAL FAILURE [None]
  - THERAPEUTIC AGENT TOXICITY [None]
